FAERS Safety Report 24443450 (Version 3)
Quarter: 2025Q1

REPORT INFORMATION
  Report Type: Report from Study
  Country: CO (occurrence: CO)
  Receive Date: 20241016
  Receipt Date: 20250131
  Transmission Date: 20250408
  Serious: Yes (Disabling)
  Sender: AMGEN
  Company Number: CO-AMGEN-COLSL2024201856

PATIENT
  Age: 72 Year
  Sex: Male

DRUGS (3)
  1. VECTIBIX [Suspect]
     Active Substance: PANITUMUMAB
     Indication: Colorectal cancer metastatic
     Dosage: 400 MILLIGRAM, Q2WK, BIWEEKLY
     Route: 042
     Dates: start: 20240617
  2. VECTIBIX [Suspect]
     Active Substance: PANITUMUMAB
     Dosage: 400 MILLIGRAM, Q3WK, EVERY 21 DAYS
     Route: 042
     Dates: start: 2024
  3. VECTIBIX [Suspect]
     Active Substance: PANITUMUMAB
     Route: 040
     Dates: start: 20241224

REACTIONS (9)
  - Gait disturbance [Not Recovered/Not Resolved]
  - Pain [Not Recovered/Not Resolved]
  - Asthenia [Not Recovered/Not Resolved]
  - Depressed mood [Not Recovered/Not Resolved]
  - Skin burning sensation [Not Recovered/Not Resolved]
  - Rash [Not Recovered/Not Resolved]
  - Erythema [Not Recovered/Not Resolved]
  - Pruritus [Not Recovered/Not Resolved]
  - Off label use [Unknown]

NARRATIVE: CASE EVENT DATE: 20240101
